FAERS Safety Report 10190517 (Version 1)
Quarter: 2014Q2

REPORT INFORMATION
  Report Type: Spontaneous
  Country: US (occurrence: US)
  Receive Date: 20140522
  Receipt Date: 20140522
  Transmission Date: 20141212
  Serious: Yes (Other)
  Sender: FDA-Public Use
  Company Number: US-ROCHE-1405678

PATIENT
  Sex: 0

DRUGS (2)
  1. KADCYLA [Suspect]
     Indication: METASTASES TO BREAST
     Dosage: 18TH DOSE. ?BATCH NUMBER: 574483, EXPIRY: MAY/2015.
     Route: 065
  2. ZOMETA [Concomitant]
     Route: 065

REACTIONS (1)
  - Metastases to central nervous system [Unknown]
